FAERS Safety Report 25936250 (Version 1)
Quarter: 2025Q4

REPORT INFORMATION
  Report Type: Spontaneous
  Country: US (occurrence: None)
  Receive Date: 20251017
  Receipt Date: 20251017
  Transmission Date: 20260117
  Serious: Yes (Hospitalization)
  Sender: FDA-CTU
  Company Number: None

PATIENT
  Sex: Female

DRUGS (5)
  1. SKYRIZI [Suspect]
     Active Substance: RISANKIZUMAB-RZAA
     Indication: Inflammatory bowel disease
     Dosage: 360 MG  EVERY 28 DAYS SUBCUTANEOUS?
     Route: 058
     Dates: start: 20240912
  2. SKYRIZI [Suspect]
     Active Substance: RISANKIZUMAB-RZAA
     Indication: Short-bowel syndrome
  3. GATTEX [Suspect]
     Active Substance: TEDUGLUTIDE\WATER
  4. ELIQUIS [Suspect]
     Active Substance: APIXABAN
  5. SKYRIZI [Concomitant]
     Active Substance: RISANKIZUMAB-RZAA

REACTIONS (5)
  - Urine output increased [None]
  - Acute kidney injury [None]
  - Salmonellosis [None]
  - Pulmonary embolism [None]
  - Treatment delayed [None]
